FAERS Safety Report 4315931-0 (Version None)
Quarter: 2004Q1

REPORT INFORMATION
  Report Type: 
  Country: None (occurrence: None)
  Receive Date: 20040311
  Receipt Date: 20040311
  Transmission Date: 20041129
  Serious: No
  Sender: FDA-Public Use
  Company Number: None

PATIENT
  Age: 29 Year
  Sex: Female

DRUGS (1)
  1. ZICAM [Suspect]
     Dosage: EVERY 4 HOURS
     Dates: start: 20030101, end: 20030101

REACTIONS (3)
  - DIZZINESS [None]
  - DRUG EFFECT DECREASED [None]
  - DYSPNOEA [None]
